FAERS Safety Report 5602037-3 (Version None)
Quarter: 2008Q1

REPORT INFORMATION
  Report Type: 
  Country: None (occurrence: None)
  Receive Date: 20080122
  Receipt Date: 20080122
  Transmission Date: 20080703
  Serious: Yes (Hospitalization)
  Sender: FDA-Public Use
  Company Number: None

PATIENT
  Age: 48 Year
  Sex: Female

DRUGS (1)
  1. OCTAGAM [Suspect]
     Dosage: 30 GM ONCE IV
     Route: 042
     Dates: start: 20071221, end: 20071221

REACTIONS (3)
  - LIP SWELLING [None]
  - PHARMACEUTICAL PRODUCT COMPLAINT [None]
  - RASH [None]
